FAERS Safety Report 6068281-9 (Version None)
Quarter: 2009Q1

REPORT INFORMATION
  Report Type: 
  Country: None (occurrence: None)
  Receive Date: 20090206
  Receipt Date: 20090130
  Transmission Date: 20090719
  Serious: Yes (Other)
  Sender: FDA-Public Use
  Company Number: PHHY2009FR03775

PATIENT
  Age: 50 Year
  Sex: Male

DRUGS (1)
  1. NEORAL [Suspect]
     Indication: HEART TRANSPLANT
     Dosage: UNK

REACTIONS (7)
  - CORONARY ARTERY DISEASE [None]
  - COUGH [None]
  - DYSPNOEA [None]
  - EPSTEIN-BARR VIRUS INFECTION [None]
  - HEPATIC NEOPLASM [None]
  - HYPOXIA [None]
  - NODULE [None]
